FAERS Safety Report 4405759-5 (Version None)
Quarter: 2004Q3

REPORT INFORMATION
  Report Type: 
  Country: None (occurrence: None)
  Receive Date: 20040723
  Receipt Date: 20031203
  Transmission Date: 20050211
  Serious: No
  Sender: FDA-Public Use
  Company Number: US-GLAXOSMITHKLINE-A0441789A

PATIENT
  Age: 76 Year
  Sex: Male

DRUGS (11)
  1. AVANDIA [Suspect]
     Dosage: 4MG TWICE PER DAY
     Route: 048
  2. AMARYL [Concomitant]
  3. GLYSET [Concomitant]
  4. METFORMIN HCL [Concomitant]
  5. LANOXIN [Concomitant]
  6. COUMADIN [Concomitant]
  7. IMDUR [Concomitant]
  8. NORVASC [Concomitant]
  9. LIPITOR [Concomitant]
  10. COZAAR [Concomitant]
  11. MACRODANTIN [Concomitant]

REACTIONS (2)
  - BLOOD GLUCOSE INCREASED [None]
  - PHARMACEUTICAL PRODUCT COMPLAINT [None]
